FAERS Safety Report 6097735-4 (Version None)
Quarter: 2009Q1

REPORT INFORMATION
  Report Type: 
  Country: None (occurrence: None)
  Receive Date: 20090227
  Receipt Date: 20090223
  Transmission Date: 20090719
  Serious: Yes (Other)
  Sender: FDA-Public Use
  Company Number: US-MERCK-0812USA00048

PATIENT
  Age: 83 Year
  Sex: Male
  Weight: 75 kg

DRUGS (6)
  1. ZETIA [Suspect]
     Route: 048
     Dates: start: 20041201, end: 20080501
  2. ALLOPURINOL [Concomitant]
     Indication: GOUT
     Route: 048
     Dates: start: 19800301
  3. NIASPAN [Concomitant]
     Indication: HYPERLIPIDAEMIA
     Route: 048
     Dates: start: 20050601
  4. LOTREL [Concomitant]
     Route: 048
     Dates: start: 20051201
  5. PLAVIX [Concomitant]
     Route: 048
     Dates: start: 20060201
  6. GLIMEPIRIDE [Concomitant]
     Route: 048
     Dates: start: 20080101

REACTIONS (3)
  - ANOREXIA [None]
  - HEPATORENAL SYNDROME [None]
  - WEIGHT DECREASED [None]
